FAERS Safety Report 20540518 (Version 1)
Quarter: 2022Q1

REPORT INFORMATION
  Report Type: Spontaneous
  Country: DE (occurrence: DE)
  Receive Date: 20220302
  Receipt Date: 20220302
  Transmission Date: 20220423
  Serious: Yes (Hospitalization, Other)
  Sender: FDA-Public Use
  Company Number: DE-BAYER-2021A250600

PATIENT
  Sex: Male

DRUGS (2)
  1. XARELTO [Suspect]
     Active Substance: RIVAROXABAN
     Indication: Atrial fibrillation
     Dosage: 20 MG
     Route: 048
  2. FRAGMIN [Concomitant]
     Active Substance: DALTEPARIN SODIUM

REACTIONS (4)
  - Haematuria [Unknown]
  - Nephrolithiasis [Unknown]
  - Joint swelling [Recovering/Resolving]
  - Superficial vein prominence [Recovering/Resolving]

NARRATIVE: CASE EVENT DATE: 20210901
